FAERS Safety Report 7192210-8 (Version None)
Quarter: 2010Q4

REPORT INFORMATION
  Report Type: 
  Country: None (occurrence: None)
  Receive Date: 20101223
  Receipt Date: 20101213
  Transmission Date: 20110411
  Serious: Yes (Disabling, Other)
  Sender: FDA-Public Use
  Company Number: DE-SANOFI-AVENTIS-2010SA070205

PATIENT
  Age: 71 Year
  Sex: Female

DRUGS (7)
  1. MULTAQ [Suspect]
     Indication: ATRIAL FIBRILLATION
     Route: 048
     Dates: end: 20101001
  2. MARCUMAR [Concomitant]
     Indication: ATRIAL FIBRILLATION
     Dosage: DOSAGE: ACCORDING TO INR
     Route: 048
  3. CARMEN [Concomitant]
     Indication: HYPERTENSION
     Route: 048
  4. ENALAPRIL MALEATE AND HYDROCHLOROTHIAZIDE [Concomitant]
     Indication: HYPERTENSION
     Route: 048
  5. ENALAPRIL MALEATE [Concomitant]
     Indication: HYPERTENSION
     Dosage: DOSAGE: 0-0-2
     Route: 048
  6. BISOPROLOL [Concomitant]
     Indication: HYPERTENSION
     Dosage: DOSAGE: 1/2-0-1/2
     Route: 048
  7. BISOPROLOL [Concomitant]
     Indication: ATRIAL FIBRILLATION
     Dosage: DOSAGE: 1/2-0-1/2
     Route: 048

REACTIONS (4)
  - ANAEMIA [None]
  - BLOOD CREATININE INCREASED [None]
  - GLOMERULAR FILTRATION RATE DECREASED [None]
  - RENAL IMPAIRMENT [None]
